FAERS Safety Report 18013030 (Version 2)
Quarter: 2020Q3

REPORT INFORMATION
  Report Type: Spontaneous
  Country: US (occurrence: US)
  Receive Date: 20200713
  Receipt Date: 20200915
  Transmission Date: 20201103
  Serious: No
  Sender: FDA-Public Use
  Company Number: US-AMGEN-USASP2020110930

PATIENT
  Age: 67 Year
  Sex: Male

DRUGS (6)
  1. OTEZLA [Suspect]
     Active Substance: APREMILAST
     Indication: PSORIATIC ARTHROPATHY
     Dosage: 30 MILLIGRAM, BID
     Route: 048
     Dates: start: 20200709
  2. ROSUVASTATIN. [Concomitant]
     Active Substance: ROSUVASTATIN
  3. TRAMADOL. [Concomitant]
     Active Substance: TRAMADOL
  4. FOLIC ACID. [Concomitant]
     Active Substance: FOLIC ACID
  5. METHOTREXATE. [Concomitant]
     Active Substance: METHOTREXATE
  6. METOPROLOL. [Concomitant]
     Active Substance: METOPROLOL

REACTIONS (2)
  - Ageusia [Not Recovered/Not Resolved]
  - Arthralgia [Not Recovered/Not Resolved]

NARRATIVE: CASE EVENT DATE: 20200709
